FAERS Safety Report 7903326 (Version 3)
Quarter: 2012Q4

REPORT INFORMATION
  Report Type: 
  Country: US (occurrence: US)
  Receive Date: 20110418
  Receipt Date: 20121130
  Transmission Date: 20130627
  Serious: Yes (Other)
  Sender: FDA-Public Use
  Company Number: US-ASTRAZENECA-2010SE26125

PATIENT
  Age: 62 Year
  Sex: Female

DRUGS (4)
  1. ATACAND [Suspect]
     Route: 048
  2. NEXIUM [Suspect]
     Dosage: TOTAL DAILY DOSE 40 MG
     Route: 048
  3. PLAVIX [Suspect]
     Route: 048
     Dates: start: 2003, end: 2003
  4. CELEBREX [Suspect]
     Dosage: TOTAL DAILY DOSE 400 MG
     Route: 065

REACTIONS (3)
  - Cerebrovascular accident [Unknown]
  - Speech disorder [Unknown]
  - Memory impairment [Unknown]
